FAERS Safety Report 22034481 (Version 1)
Quarter: 2023Q1

REPORT INFORMATION
  Report Type: Spontaneous
  Country: US (occurrence: None)
  Receive Date: 20230222
  Receipt Date: 20230222
  Transmission Date: 20230417
  Serious: Yes (Other)
  Sender: FDA-Public Use
  Company Number: None

PATIENT
  Sex: Female
  Weight: 64.35 kg

DRUGS (2)
  1. TRESIBA [Suspect]
     Active Substance: INSULIN DEGLUDEC
  2. BASAGLAR [Suspect]
     Active Substance: INSULIN GLARGINE

REACTIONS (3)
  - Malaise [None]
  - Blood glucose abnormal [None]
  - Product formulation issue [None]
